FAERS Safety Report 9541810 (Version 1)
Quarter: 2013Q3

REPORT INFORMATION
  Report Type: Spontaneous
  Country: US (occurrence: None)
  Receive Date: 20130919
  Receipt Date: 20130919
  Transmission Date: 20140515
  Serious: Yes (Disabling, Other)
  Sender: FDA-Public Use
  Company Number: None

PATIENT
  Age: 70 Year
  Sex: Female

DRUGS (13)
  1. PURITY FIRST VITAMIN B50 [Suspect]
     Dosage: 3 DAILY-B, 6 DAILY-MULTI
     Route: 048
     Dates: start: 201212, end: 20130213
  2. MICARDIS 40 MG [Concomitant]
  3. LIVALO 2 MG [Concomitant]
  4. BYSTOLIC 10 MG [Concomitant]
  5. DEXILANT 60 MG [Concomitant]
  6. NASONEX SPRAY [Concomitant]
  7. BOITIN 2.5 MG [Concomitant]
  8. FOLIC ACID 400 MG [Concomitant]
  9. ASPIRIN 81 MG [Concomitant]
  10. CO Q10 100 MG [Concomitant]
  11. CURCUMIN 900 MG [Concomitant]
  12. L-LYSINE 500 MG [Concomitant]
  13. CALCIUM/MAGNESIUM [Concomitant]

REACTIONS (9)
  - Hypertension [None]
  - Arthralgia [None]
  - Blood cholesterol increased [None]
  - Blood triglycerides increased [None]
  - Fluid retention [None]
  - Alopecia [None]
  - Hallucination, auditory [None]
  - Hair growth abnormal [None]
  - Dyspnoea [None]
